FAERS Safety Report 9464905 (Version 6)
Quarter: 2013Q4

REPORT INFORMATION
  Report Type: Spontaneous
  Country: JP (occurrence: JP)
  Receive Date: 20130819
  Receipt Date: 20131111
  Transmission Date: 20140711
  Serious: Yes (Hospitalization, Disabling)
  Sender: FDA-Public Use
  Company Number: JP-BRISTOL-MYERS SQUIBB COMPANY-19182559

PATIENT
  Age: 47 Year
  Sex: Female
  Weight: 57 kg

DRUGS (5)
  1. ORENCIA FOR INJ 250 MG/VIAL [Suspect]
     Indication: RHEUMATOID ARTHRITIS
     Dosage: DISCONTINUED:17-JUL-2013
     Route: 041
     Dates: start: 20130522, end: 20130816
  2. LOXONIN [Concomitant]
     Indication: RHEUMATOID ARTHRITIS
     Route: 048
     Dates: start: 20120801, end: 20130707
  3. PREDONINE [Concomitant]
     Indication: RHEUMATOID ARTHRITIS
     Dosage: 19JUN-26AUG?27AUG TO ONG
     Route: 048
     Dates: start: 20130619
  4. MUCOSTA [Concomitant]
  5. SELBEX [Concomitant]
     Indication: GASTRITIS
     Route: 048
     Dates: start: 20120801, end: 20130707

REACTIONS (2)
  - Renal tubular acidosis [Recovering/Resolving]
  - Sjogren^s syndrome [Not Recovered/Not Resolved]
